FAERS Safety Report 5893133-4 (Version None)
Quarter: 2008Q3

REPORT INFORMATION
  Report Type: 
  Country: None (occurrence: None)
  Receive Date: 20080923
  Receipt Date: 20070817
  Transmission Date: 20090109
  Serious: No
  Sender: FDA-Public Use
  Company Number: US-ASTRAZENECA-2007UW19880

PATIENT
  Age: 31 Year
  Sex: Male
  Weight: 94.8 kg

DRUGS (5)
  1. SEROQUEL [Suspect]
     Indication: PANIC ATTACK
     Route: 048
     Dates: start: 20050101
  2. SEROQUEL [Suspect]
     Route: 048
  3. KLONOPIN [Concomitant]
  4. NEXIUM [Concomitant]
  5. LEVITRA [Concomitant]

REACTIONS (5)
  - GALLBLADDER DISORDER [None]
  - GLOSSODYNIA [None]
  - GLUCOSE TOLERANCE IMPAIRED [None]
  - HYPERHIDROSIS [None]
  - WEIGHT INCREASED [None]
